FAERS Safety Report 4401085-9 (Version None)
Quarter: 2004Q3

REPORT INFORMATION
  Report Type: 
  Country: None (occurrence: None)
  Receive Date: 20040907
  Receipt Date: 20031022
  Transmission Date: 20050211
  Serious: Yes (Other)
  Sender: FDA-Public Use
  Company Number: US-BRISTOL-MYERS SQUIBB COMPANY-12417366

PATIENT
  Age: 68 Year
  Sex: Male
  Weight: 82 kg

DRUGS (4)
  1. COUMADIN [Suspect]
     Indication: DEEP VEIN THROMBOSIS
     Dosage: ^TAKEN FOR ABOUT 6 MONTHS, VARYING DOSES^; INTERRUPTED, 10/21, DOSE DECREASED.
     Route: 048
     Dates: start: 20021001
  2. REMERON [Suspect]
     Indication: DEPRESSION
     Route: 048
     Dates: start: 20031015, end: 20031021
  3. ACTOS [Concomitant]
  4. ENDOCET [Concomitant]

REACTIONS (1)
  - INTERNATIONAL NORMALISED RATIO INCREASED [None]
